FAERS Safety Report 7625163-6 (Version None)
Quarter: 2011Q3

REPORT INFORMATION
  Report Type: 
  Country: None (occurrence: None)
  Receive Date: 20110712
  Receipt Date: 20110627
  Transmission Date: 20111222
  Serious: Yes (Death)
  Sender: FDA-Public Use
  Company Number: OPER20110145

PATIENT
  Age: 27 Year
  Sex: Female
  Weight: 83.9154 kg

DRUGS (4)
  1. METHAMPHETAMINE HYDROCHLORIDE [Suspect]
     Indication: DRUG ABUSE
     Dosage: ORAL
     Route: 048
  2. OXAZEPAM [Suspect]
     Indication: DRUG ABUSE
     Dosage: ORAL
     Route: 048
  3. ALPRAZOLAM [Suspect]
     Indication: DRUG ABUSE
     Dosage: ORAL
     Route: 048
  4. OPANA ER (OXYMORPHONE HYDRPOCHLORIDE) (TABLETS) [Suspect]
     Indication: DRUG ABUSE
     Dosage: ORAL
     Route: 048

REACTIONS (3)
  - EXCORIATION [None]
  - DRUG ABUSE [None]
  - TOXICITY TO VARIOUS AGENTS [None]
